FAERS Safety Report 20074727 (Version 3)
Quarter: 2022Q4

REPORT INFORMATION
  Report Type: Spontaneous
  Country: JP (occurrence: JP)
  Receive Date: 20211116
  Receipt Date: 20221110
  Transmission Date: 20230112
  Serious: Yes (Death, Other)
  Sender: FDA-Public Use
  Company Number: JP-GILEAD-2021-0556391

PATIENT
  Age: 95 Year
  Sex: Male

DRUGS (13)
  1. VEKLURY [Suspect]
     Active Substance: REMDESIVIR
     Indication: COVID-19
     Dosage: 200 MG, QD
     Route: 041
     Dates: start: 20210122, end: 20210122
  2. VEKLURY [Suspect]
     Active Substance: REMDESIVIR
     Dosage: 100 MG, QD
     Route: 041
     Dates: start: 20210123, end: 20210131
  3. HEPARIN CALCIUM [Concomitant]
     Active Substance: HEPARIN CALCIUM
     Indication: COVID-19
     Dosage: 5000 IU, BID
     Route: 058
     Dates: start: 20210127, end: 20210131
  4. DEXAMETHASONE SODIUM PHOSPHATE [Concomitant]
     Active Substance: DEXAMETHASONE SODIUM PHOSPHATE
     Indication: COVID-19
     Dosage: 6.6 MG, QD
     Route: 041
     Dates: start: 20210115, end: 20210125
  5. NAFAMOSTAT [NAFAMOSTAT MESILATE] [Concomitant]
     Indication: COVID-19
     Dosage: 50 MG, QD
     Route: 041
     Dates: start: 20210115, end: 20210125
  6. DECADRON [Concomitant]
     Active Substance: DEXAMETHASONE
     Indication: COVID-19
     Dosage: 6 MG, QD
     Route: 048
     Dates: start: 20210131, end: 20210131
  7. CAMOSTAT MESYLATE [Concomitant]
     Active Substance: CAMOSTAT MESYLATE
     Indication: COVID-19
     Dosage: 200 MG, TID
     Route: 048
     Dates: start: 20210126, end: 20210127
  8. CEFTRIAXONE SODIUM [Concomitant]
     Active Substance: CEFTRIAXONE SODIUM
     Indication: Pneumonia bacterial
     Dosage: 2 G, QD
     Route: 041
     Dates: start: 20210127, end: 20210131
  9. ROZEREM [Concomitant]
     Active Substance: RAMELTEON
     Indication: Insomnia
     Dosage: 8 MG, QD
     Route: 048
     Dates: start: 20210125, end: 20210130
  10. BELSOMRA [Concomitant]
     Active Substance: SUVOREXANT
     Indication: Insomnia
     Dosage: 10 MG, QD
     Route: 048
     Dates: start: 20210128, end: 20210128
  11. BELSOMRA [Concomitant]
     Active Substance: SUVOREXANT
     Dosage: 15 MG, QD
     Route: 048
     Dates: start: 20210126, end: 20210130
  12. QUETIAPINE FUMARATE [Concomitant]
     Active Substance: QUETIAPINE FUMARATE
     Indication: Delirium
     Dosage: 12.5 MG, QD
     Route: 048
     Dates: start: 20210130, end: 20210130
  13. LANSOPRAZOLE [Concomitant]
     Active Substance: LANSOPRAZOLE
     Indication: Gastric ulcer
     Dosage: 15 MG, QD
     Route: 048
     Dates: start: 20210118, end: 20210130

REACTIONS (3)
  - Blood urea increased [Not Recovered/Not Resolved]
  - COVID-19 pneumonia [Fatal]
  - Renal impairment [Fatal]

NARRATIVE: CASE EVENT DATE: 20210101
